FAERS Safety Report 5551095-3 (Version None)
Quarter: 2007Q4

REPORT INFORMATION
  Report Type: 
  Country: None (occurrence: None)
  Receive Date: 20071212
  Receipt Date: 20071206
  Transmission Date: 20080405
  Serious: Yes (Hospitalization)
  Sender: FDA-Public Use
  Company Number: A0697751A

PATIENT
  Age: 26 Year
  Sex: Male

DRUGS (4)
  1. PAXIL [Suspect]
     Indication: SCHIZOPHRENIA
     Dosage: 20MG PER DAY
     Route: 048
     Dates: start: 19980101
  2. PAROXETINE [Suspect]
     Indication: SCHIZOPHRENIA
     Dosage: 20CAPL PER DAY
     Route: 048
     Dates: start: 19980101, end: 20050101
  3. ABILIFY [Concomitant]
  4. LEXAPRO [Concomitant]

REACTIONS (2)
  - ABDOMINAL PAIN UPPER [None]
  - BENIGN NEOPLASM [None]
